FAERS Safety Report 4701864-4 (Version None)
Quarter: 2005Q2

REPORT INFORMATION
  Report Type: 
  Country: None (occurrence: None)
  Receive Date: 20050627
  Receipt Date: 20050613
  Transmission Date: 20051028
  Serious: Yes (Hospitalization)
  Sender: FDA-Public Use
  Company Number: 2005089308

PATIENT
  Age: 92 Year
  Sex: Female

DRUGS (2)
  1. DETROL [Suspect]
     Indication: ILL-DEFINED DISORDER
  2. DDAVP [Suspect]
     Indication: ILL-DEFINED DISORDER

REACTIONS (4)
  - CONSTIPATION [None]
  - DIFFICULTY IN WALKING [None]
  - DRY MOUTH [None]
  - LOSS OF CONSCIOUSNESS [None]
